FAERS Safety Report 10010424 (Version 1)
Quarter: 2014Q1

REPORT INFORMATION
  Report Type: Spontaneous
  Country: US (occurrence: US)
  Receive Date: 20140314
  Receipt Date: 20140314
  Transmission Date: 20141002
  Serious: No
  Sender: FDA-Public Use
  Company Number: US-BIOGENIDEC-2014BI023413

PATIENT
  Age: 45 Year
  Sex: Male

DRUGS (1)
  1. TYSABRI [Suspect]
     Indication: MULTIPLE SCLEROSIS
     Route: 042
     Dates: start: 20131220

REACTIONS (9)
  - Hypoaesthesia [Not Recovered/Not Resolved]
  - Depression [Not Recovered/Not Resolved]
  - Muscle spasms [Recovered/Resolved]
  - Stress [Not Recovered/Not Resolved]
  - Disorientation [Recovered/Resolved]
  - Muscular weakness [Recovered/Resolved]
  - Fatigue [Not Recovered/Not Resolved]
  - Infusion site pain [Not Recovered/Not Resolved]
  - Headache [Recovered/Resolved]
